FAERS Safety Report 5112936-7 (Version None)
Quarter: 2006Q3

REPORT INFORMATION
  Report Type: 
  Country: None (occurrence: None)
  Receive Date: 20060922
  Receipt Date: 20060920
  Transmission Date: 20061208
  Serious: Yes (Other)
  Sender: FDA-Public Use
  Company Number: 200614836EU

PATIENT
  Sex: Female

DRUGS (2)
  1. NICORETTE [Suspect]
     Dosage: 2MG SEE DOSAGE TEXT
     Route: 002
     Dates: start: 20010101
  2. DIURETIC [Concomitant]
     Indication: DIURETIC THERAPY
     Route: 048

REACTIONS (2)
  - DEPENDENCE [None]
  - INTENTIONAL DRUG MISUSE [None]
